FAERS Safety Report 4721917-4 (Version None)
Quarter: 2005Q3

REPORT INFORMATION
  Report Type: 
  Country: None (occurrence: None)
  Receive Date: 20050722
  Receipt Date: 20050627
  Transmission Date: 20060218
  Serious: Yes (Other)
  Sender: FDA-Public Use
  Company Number: PHBS2005BE09484

PATIENT
  Age: 74 Year
  Sex: Male

DRUGS (6)
  1. ZOMETA [Suspect]
     Indication: MULTIPLE MYELOMA
     Dosage: UNK, UNK
     Route: 042
     Dates: start: 20021030
  2. AREDIA [Suspect]
     Indication: MULTIPLE MYELOMA
     Route: 042
     Dates: start: 20000516, end: 20020925
  3. RADIATION THERAPY [Concomitant]
     Dosage: 46 GY AT D10-L3
     Dates: start: 20000712, end: 20000814
  4. CORTICOSTEROIDS [Concomitant]
     Route: 065
     Dates: start: 20000101
  5. ALKERAN [Concomitant]
     Route: 065
     Dates: start: 20020405, end: 20030122
  6. MEDROL [Concomitant]
     Route: 065
     Dates: start: 20020405, end: 20030122

REACTIONS (12)
  - ASEPTIC NECROSIS BONE [None]
  - BONE DEBRIDEMENT [None]
  - BONE DISORDER [None]
  - CYST [None]
  - DISEASE PROGRESSION [None]
  - EXCESSIVE GRANULATION TISSUE [None]
  - FIBROSIS [None]
  - ORAL MUCOSAL DISORDER [None]
  - OSTEITIS [None]
  - OSTEOMYELITIS [None]
  - PRIMARY SEQUESTRUM [None]
  - TOOTH EXTRACTION [None]
